FAERS Safety Report 10657809 (Version 3)
Quarter: 2015Q1

REPORT INFORMATION
  Report Type: Report from Study
  Country: BE (occurrence: BE)
  Receive Date: 20141217
  Receipt Date: 20150205
  Transmission Date: 20150720
  Serious: Yes (Hospitalization)
  Sender: FDA-Public Use
  Company Number: BE-UCBSA-2014013904

PATIENT
  Age: 12 Year
  Sex: Male
  Weight: 32 kg

DRUGS (10)
  1. LACOSAMIDE [Suspect]
     Active Substance: LACOSAMIDE
     Indication: EPILEPSY
     Dosage: 200 MG MORNING, 250 MG EVENING
     Route: 048
     Dates: start: 20140606, end: 20140928
  2. BACLOFEN. [Concomitant]
     Active Substance: BACLOFEN
     Indication: HYPOTONIA
     Dosage: 10 MG, ONCE DAILY (QD)
     Route: 048
     Dates: start: 201405
  3. OMEPRAZOLE. [Concomitant]
     Active Substance: OMEPRAZOLE
     Indication: DYSPEPSIA
     Dosage: 20 MG, AS NEEDED (PRN)
     Route: 048
     Dates: start: 20130816
  4. VALPROIC ACID. [Concomitant]
     Active Substance: VALPROIC ACID
     Indication: EPILEPSY
     Dosage: 900 MG, ONCE DAILY (QD)
     Route: 048
     Dates: start: 20140512
  5. LAXIDO [Concomitant]
     Active Substance: POLYETHYLENE GLYCOL 3350\POTASSIUM CHLORIDE\SODIUM BICARBONATE\SODIUM CHLORIDE
     Indication: CONSTIPATION
     Dosage: 1 PATCH TUES,THURS,SAT,SUN/ 2 PATCH MON,WED,FRI
     Route: 061
     Dates: start: 20140728
  6. LACOSAMIDE [Suspect]
     Active Substance: LACOSAMIDE
     Dosage: 200 MG MORNING, 200 MG EVENING
     Route: 048
     Dates: start: 20140929, end: 20140929
  7. VICTAN [Concomitant]
     Active Substance: ETHYL LOFLAZEPATE
     Indication: EPILEPSY
     Dosage: 1 MG, 2X/DAY (BID)
     Route: 048
     Dates: start: 201405
  8. TOPIRAMATE. [Concomitant]
     Active Substance: TOPIRAMATE
     Indication: EPILEPSY
     Dosage: 75 MG, 2X/DAY (BID)
     Dates: start: 20080314
  9. NASONEX [Concomitant]
     Active Substance: MOMETASONE FUROATE
     Indication: RESPIRATORY TRACT INFECTION
     Dosage: 1 PUFF, 2X/DAY (BID)
     Dates: start: 201405
  10. TEMESTA [Concomitant]
     Active Substance: LORAZEPAM
     Indication: EPILEPSY
     Dosage: 1 MG, AS NEEDED (PRN)

REACTIONS (1)
  - Decreased appetite [Recovered/Resolved]

NARRATIVE: CASE EVENT DATE: 20140929
